FAERS Safety Report 7113044-6 (Version None)
Quarter: 2010Q4

REPORT INFORMATION
  Report Type: 
  Country: None (occurrence: None)
  Receive Date: 20101119
  Receipt Date: 20101110
  Transmission Date: 20110411
  Serious: Yes (Life-Threatening, Hospitalization, Other)
  Sender: FDA-Public Use
  Company Number: CH-JNJFOC-20101103155

PATIENT
  Age: 29 Year
  Sex: Male

DRUGS (7)
  1. TOPAMAX [Suspect]
     Indication: EPILEPSY
     Route: 048
  2. TOPAMAX [Suspect]
     Route: 048
  3. SEROQUEL [Suspect]
     Indication: FRONTOTEMPORAL DEMENTIA
     Route: 065
  4. SEROQUEL [Suspect]
     Route: 065
  5. ORFIRIL [Suspect]
     Indication: EPILEPSY
     Route: 065
  6. ORFIRIL [Suspect]
     Route: 065
  7. XANAX [Concomitant]
     Indication: ILL-DEFINED DISORDER
     Route: 065

REACTIONS (16)
  - AGITATION [None]
  - ALANINE AMINOTRANSFERASE INCREASED [None]
  - ASPARTATE AMINOTRANSFERASE INCREASED [None]
  - CARDIAC FAILURE [None]
  - CIRCULATORY COLLAPSE [None]
  - COMA [None]
  - DISSEMINATED INTRAVASCULAR COAGULATION [None]
  - HEAT STROKE [None]
  - HEPATIC ENZYME INCREASED [None]
  - HYPERTHERMIA [None]
  - HYPOVOLAEMIC SHOCK [None]
  - MULTI-ORGAN FAILURE [None]
  - NEUROLEPTIC MALIGNANT SYNDROME [None]
  - RENAL FAILURE ACUTE [None]
  - SOMNOLENCE [None]
  - TROPONIN INCREASED [None]
